FAERS Safety Report 6657471-X (Version None)
Quarter: 2010Q1

REPORT INFORMATION
  Report Type: 
  Country: None (occurrence: None)
  Receive Date: 20100325
  Receipt Date: 20100317
  Transmission Date: 20100710
  Serious: Yes (Hospitalization)
  Sender: FDA-Public Use
  Company Number: 536707

PATIENT
  Age: 47 Year
  Sex: Female

DRUGS (1)
  1. EPINEPHRINE [Suspect]
     Indication: HAEMORRHAGE
     Dosage: 6 ML,INJECTION

REACTIONS (2)
  - CONDITION AGGRAVATED [None]
  - MESENTERIC PANNICULITIS [None]
